FAERS Safety Report 10257345 (Version 1)
Quarter: 2014Q2

REPORT INFORMATION
  Report Type: Spontaneous
  Country: US (occurrence: None)
  Receive Date: 20140623
  Receipt Date: 20140623
  Transmission Date: 20141212
  Serious: Yes (Disabling, Other)
  Sender: FDA-Public Use
  Company Number: None

PATIENT
  Sex: Female
  Weight: 58.97 kg

DRUGS (9)
  1. CARVEDILOL ZYDUS [Suspect]
     Indication: HYPERTROPHIC CARDIOMYOPATHY
     Route: 048
     Dates: start: 201311, end: 20140515
  2. FUROSEMIDE [Concomitant]
  3. SPIRONOLACTONE [Concomitant]
  4. COREG [Concomitant]
  5. RANEXA [Concomitant]
  6. L-THYROXINE [Concomitant]
  7. MEDTRONIC PACEMAKER/DEFIBRILLATOR [Concomitant]
  8. ZYRTEC [Concomitant]
  9. BENADRYL [Concomitant]

REACTIONS (7)
  - Quality of life decreased [None]
  - Condition aggravated [None]
  - Product substitution issue [None]
  - Product quality issue [None]
  - Dyspnoea [None]
  - Heart rate irregular [None]
  - Palpitations [None]
